FAERS Safety Report 7878054-X (Version None)
Quarter: 2011Q4

REPORT INFORMATION
  Report Type: 
  Country: None (occurrence: None)
  Receive Date: 20111101
  Receipt Date: 20111021
  Transmission Date: 20120403
  Serious: Yes (Other)
  Sender: FDA-Public Use
  Company Number: US-BIOGENIDEC-2011BI038066

PATIENT
  Age: 38 Year
  Sex: Female

DRUGS (1)
  1. TYSABRI [Suspect]
     Indication: MULTIPLE SCLEROSIS
     Route: 042
     Dates: start: 20080908

REACTIONS (7)
  - VISION BLURRED [None]
  - ASTHENIA [None]
  - DYSARTHRIA [None]
  - FALL [None]
  - CONTUSION [None]
  - GRAND MAL CONVULSION [None]
  - SCRATCH [None]
